FAERS Safety Report 22835356 (Version 3)
Quarter: 2024Q1

REPORT INFORMATION
  Report Type: Spontaneous
  Country: PL (occurrence: PL)
  Receive Date: 20230818
  Receipt Date: 20240314
  Transmission Date: 20240410
  Serious: Yes (Other)
  Sender: FDA-Public Use
  Company Number: PL-CELLTRION INC.-2023PL016208

PATIENT

DRUGS (8)
  1. RITUXIMAB [Suspect]
     Active Substance: RITUXIMAB
     Indication: Immunosuppression
     Dosage: 1 PULSE OF 600MG I.V.
     Route: 042
  2. RITUXIMAB [Suspect]
     Active Substance: RITUXIMAB
     Indication: Diffuse vasculitis
  3. CYCLOPHOSPHAMIDE [Suspect]
     Active Substance: CYCLOPHOSPHAMIDE
     Indication: Immunosuppression
     Dosage: 2 PULSES OF 600MG I.V.
     Route: 042
  4. HEPARIN [Concomitant]
     Active Substance: HEPARIN SODIUM
     Indication: Anticoagulant therapy
     Dosage: UNK
  5. METHYLPREDNISOLONE [Concomitant]
     Active Substance: METHYLPREDNISOLONE
     Dosage: UNK
  6. PREDNISONE [Concomitant]
     Active Substance: PREDNISONE
     Dosage: UNK
  7. CINACALCET [Concomitant]
     Active Substance: CINACALCET
     Indication: Hyperparathyroidism
     Dosage: UNK
  8. SEVELAMER [Concomitant]
     Active Substance: SEVELAMER
     Dosage: UNK

REACTIONS (4)
  - Calciphylaxis [Recovering/Resolving]
  - Disease progression [Recovering/Resolving]
  - Lung disorder [Not Recovered/Not Resolved]
  - Drug ineffective for unapproved indication [Unknown]
